FAERS Safety Report 9807660 (Version 1)
Quarter: 2014Q1

REPORT INFORMATION
  Report Type: Spontaneous
  Country: US (occurrence: US)
  Receive Date: 20140110
  Receipt Date: 20140110
  Transmission Date: 20141002
  Serious: Yes (Hospitalization)
  Sender: FDA-Public Use
  Company Number: US-AMGEN-USASP2014001248

PATIENT
  Age: 62 Year
  Sex: Female
  Weight: 127.89 kg

DRUGS (3)
  1. ENBREL [Suspect]
     Indication: PRODUCT USED FOR UNKNOWN INDICATION
     Dosage: 50 MG, QWK
     Route: 058
  2. METHOTREXATE [Concomitant]
     Dosage: 2.5 MG, UNK
  3. PERCOCET                           /00867901/ [Concomitant]
     Dosage: UNK MG, UNK 5-325

REACTIONS (2)
  - Condition aggravated [Unknown]
  - Arthropathy [Unknown]
